FAERS Safety Report 13186614 (Version 3)
Quarter: 2017Q2

REPORT INFORMATION
  Report Type: Report from Study
  Country: JP (occurrence: JP)
  Receive Date: 20170205
  Receipt Date: 20170419
  Transmission Date: 20170830
  Serious: No
  Sender: FDA-Public Use
  Company Number: JP-BEH-2017077814

PATIENT
  Age: 14 Year
  Sex: Male
  Weight: 53.2 kg

DRUGS (7)
  1. E KEPPRA [Concomitant]
     Active Substance: LEVETIRACETAM
     Route: 048
  2. HIZENTRA [Suspect]
     Active Substance: HUMAN IMMUNOGLOBULIN G
     Indication: HYPOGAMMAGLOBULINAEMIA
     Dosage: 10 ML, QW
     Route: 065
     Dates: start: 20151110, end: 20151229
  3. HIZENTRA [Suspect]
     Active Substance: HUMAN IMMUNOGLOBULIN G
     Indication: IMMUNODEFICIENCY COMMON VARIABLE
     Dosage: 15 ML, QW
     Route: 065
     Dates: start: 20150811, end: 20151103
  4. RIVOTRIL [Concomitant]
     Active Substance: CLONAZEPAM
     Route: 048
  5. BAKTAR [Concomitant]
     Active Substance: SULFAMETHOXAZOLE\TRIMETHOPRIM
     Route: 048
  6. HIZENTRA [Suspect]
     Active Substance: HUMAN IMMUNOGLOBULIN G
     Indication: PRIMARY IMMUNODEFICIENCY SYNDROME
     Dosage: 15 ML, QW
     Route: 065
     Dates: start: 20150629, end: 20150804
  7. TEGRETOL [Concomitant]
     Active Substance: CARBAMAZEPINE
     Route: 048

REACTIONS (2)
  - Bronchitis [Recovering/Resolving]
  - Injection site erythema [Recovered/Resolved]

NARRATIVE: CASE EVENT DATE: 20150629
